FAERS Safety Report 17856870 (Version 1)
Quarter: 2020Q2

REPORT INFORMATION
  Report Type: Report from Study
  Country: US (occurrence: US)
  Receive Date: 20200603
  Receipt Date: 20200603
  Transmission Date: 20200714
  Serious: Yes (Hospitalization, Other)
  Sender: FDA-Public Use
  Company Number: US-BAYER-2020-100518

PATIENT

DRUGS (2)
  1. ASPIRIN 81 MG [Suspect]
     Active Substance: ASPIRIN
  2. CANGRELOR [Suspect]
     Active Substance: CANGRELOR

REACTIONS (2)
  - Gastrointestinal haemorrhage [Recovered/Resolved]
  - Labelled drug-drug interaction medication error [None]
